FAERS Safety Report 25918728 (Version 2)
Quarter: 2025Q4

REPORT INFORMATION
  Report Type: Spontaneous
  Country: US (occurrence: US)
  Receive Date: 20251014
  Receipt Date: 20251112
  Transmission Date: 20260118
  Serious: No
  Sender: PFIZER
  Company Number: US-PFIZER INC-PV202500121371

PATIENT
  Age: 62 Year
  Sex: Female
  Weight: 81.633 kg

DRUGS (1)
  1. NURTEC ODT [Suspect]
     Active Substance: RIMEGEPANT SULFATE
     Indication: Migraine
     Dosage: 1 75MG  EVERY OTHER DAY
     Dates: start: 2017, end: 20251001

REACTIONS (2)
  - Vision blurred [Unknown]
  - Headache [Recovering/Resolving]
